FAERS Safety Report 5075735-0 (Version None)
Quarter: 2006Q3

REPORT INFORMATION
  Report Type: 
  Country: None (occurrence: None)
  Receive Date: 20060807
  Receipt Date: 20060807
  Transmission Date: 20061208
  Serious: Yes (Disabling)
  Sender: FDA-Public Use
  Company Number: None

PATIENT
  Age: 55 Year
  Sex: Female
  Weight: 74.8435 kg

DRUGS (3)
  1. HYDROGEN PEROXIDE SOLUTION [Suspect]
     Indication: EPSTEIN-BARR VIRUS INFECTION
     Dosage: 7.5 % ONE DOSE IV
     Route: 042
     Dates: start: 20041004
  2. HYDROGEN PEROXIDE SOLUTION [Suspect]
     Indication: FATIGUE
     Dosage: 7.5 % ONE DOSE IV
     Route: 042
     Dates: start: 20041004
  3. AMANTADINE HCL [Concomitant]

REACTIONS (2)
  - BURNING SENSATION [None]
  - PAIN [None]
